FAERS Safety Report 9112765 (Version 2)
Quarter: 2013Q1

REPORT INFORMATION
  Report Type: Spontaneous
  Country: CA (occurrence: CA)
  Receive Date: 20130211
  Receipt Date: 20130304
  Transmission Date: 20140127
  Serious: Yes (Hospitalization, Other)
  Sender: FDA-Public Use
  Company Number: CA-AMGEN-CANSP2013007922

PATIENT
  Age: 63 Year
  Sex: Female
  Weight: 97.51 kg

DRUGS (19)
  1. ENBREL [Suspect]
     Indication: PSORIASIS
     Dosage: 50 MG, 2 TIMES/WK
     Route: 058
     Dates: start: 20110811, end: 20120630
  2. CLOTRIMAZOLE [Concomitant]
     Dosage: 1 %, BID APPLY TO BREAST FOLDS
  3. DOCUSATE CALCIUM [Concomitant]
     Dosage: 240 MG, QD
     Route: 048
  4. INSULIN LISPRO [Concomitant]
     Dosage: 20 UNIT, TID (WITH MEALS)
     Route: 058
  5. INSULIN LISPRO [Concomitant]
     Dosage: 40 UNIT, UNK TID (WITH MEALS)
     Route: 058
  6. INSULIN N [Concomitant]
     Dosage: 10 UNIT, QHS
     Route: 058
  7. INSULIN N [Concomitant]
     Dosage: 40 UNIT, QHS
     Route: 058
  8. LEVOTHYROXINE [Concomitant]
     Dosage: 150 MUG, QD
     Route: 048
  9. ZOPICLONE [Concomitant]
     Dosage: 15 MG, QHS
     Route: 048
  10. METOCLOPRAMIDE                     /00041902/ [Concomitant]
     Dosage: 10 MG, UNK PRN
     Route: 048
  11. METFORMIN [Concomitant]
     Dosage: 1000 MG, BID
     Route: 048
  12. GLYBURIDE [Concomitant]
     Dosage: UNK
  13. OMEPRAZOLE [Concomitant]
     Dosage: 20 MG, QD
     Route: 048
  14. IRBESARTAN [Concomitant]
     Dosage: 150 MG, QD
     Route: 048
  15. IRBESARTAN [Concomitant]
     Dosage: 300 MG, UNK
     Route: 048
  16. FUROSEMIDE [Concomitant]
     Dosage: 120 MG, UNK (Q A.M, AND Q AFTOMOON)
     Route: 048
  17. FUROSEMIDE [Concomitant]
     Dosage: 80 MG, UNK (Q A.M, AND Q AFTOMOON)
  18. AMLODIPINE [Concomitant]
     Dosage: 5 MG, QD
     Route: 048
  19. AMLODIPINE [Concomitant]
     Dosage: 2.5 MG, QD
     Route: 048

REACTIONS (22)
  - Renal failure acute [Recovering/Resolving]
  - Eye haemorrhage [Recovering/Resolving]
  - Retinopathy haemorrhagic [Unknown]
  - Hypertension [Unknown]
  - Diabetic retinopathy [Unknown]
  - Gastrointestinal haemorrhage [Unknown]
  - Cardiac failure congestive [Recovering/Resolving]
  - Anaemia [Unknown]
  - Haemoglobin decreased [Recovering/Resolving]
  - White blood cell count decreased [Recovering/Resolving]
  - Hypoglycaemia [Unknown]
  - Proteinuria [Unknown]
  - Dyspnoea paroxysmal nocturnal [Unknown]
  - Local swelling [Unknown]
  - Visual impairment [Unknown]
  - Chills [Unknown]
  - Cough [Unknown]
  - Malaise [Unknown]
  - Loss of consciousness [Unknown]
  - Hypophagia [Unknown]
  - Urine output decreased [Unknown]
  - Psoriasis [Unknown]
